FAERS Safety Report 9808959 (Version 2)
Quarter: 2019Q3

REPORT INFORMATION
  Report Type: Spontaneous
  Country: US (occurrence: US)
  Receive Date: 20140110
  Receipt Date: 20190716
  Transmission Date: 20191005
  Serious: Yes (Death)
  Sender: FDA-Public Use
  Company Number: US-PFIZER INC-2014006739

PATIENT
  Age: 47 Year
  Sex: Male

DRUGS (5)
  1. ALPRAZOLAM. [Suspect]
     Active Substance: ALPRAZOLAM
     Route: 051
  2. HEROIN [Suspect]
     Active Substance: DIAMORPHINE
     Route: 051
  3. CODEINE [Suspect]
     Active Substance: CODEINE
     Route: 051
  4. TAPENTADOL [Suspect]
     Active Substance: TAPENTADOL
     Route: 051
  5. OXYCODONE HYDROCHLORIDE. [Suspect]
     Active Substance: OXYCODONE HYDROCHLORIDE
     Route: 051

REACTIONS (1)
  - Drug abuse [Fatal]

NARRATIVE: CASE EVENT DATE: 2012
